FAERS Safety Report 25062005 (Version 2)
Quarter: 2025Q2

REPORT INFORMATION
  Report Type: Spontaneous
  Country: TR (occurrence: TR)
  Receive Date: 20250311
  Receipt Date: 20250505
  Transmission Date: 20250717
  Serious: Yes (Other)
  Sender: AMGEN
  Company Number: TR-PFIZER INC-PV202500027102

PATIENT
  Age: 24 Year
  Sex: Male

DRUGS (1)
  1. ENBREL [Suspect]
     Active Substance: ETANERCEPT
     Indication: Ankylosing spondylitis
     Route: 065

REACTIONS (2)
  - Pharyngeal swelling [Unknown]
  - Hypersensitivity [Unknown]
